FAERS Safety Report 11564622 (Version 1)
Quarter: 2015Q3

REPORT INFORMATION
  Report Type: Spontaneous
  Country: US (occurrence: US)
  Receive Date: 20150928
  Receipt Date: 20150928
  Transmission Date: 20151125
  Serious: No
  Sender: FDA-Public Use
  Company Number: US-PFIZER INC-2015308988

PATIENT
  Age: 28 Year
  Sex: Male

DRUGS (7)
  1. KLONOPIN [Concomitant]
     Active Substance: CLONAZEPAM
  2. KEPPRA [Concomitant]
     Active Substance: LEVETIRACETAM
  3. XANAX [Concomitant]
     Active Substance: ALPRAZOLAM
  4. GABAPENTIN. [Suspect]
     Active Substance: GABAPENTIN
     Indication: EPILEPSY
     Dosage: 800 MG, 4X/DAY (ONE TABLET FOUR TIMES A DAY)
  5. PHENOBARBITAL. [Concomitant]
     Active Substance: PHENOBARBITAL
  6. ATIVAN [Concomitant]
     Active Substance: LORAZEPAM
  7. GABAPENTIN. [Suspect]
     Active Substance: GABAPENTIN
     Indication: PAIN
     Dosage: 1600 MG, 2X/DAY (TAKE TWO 800MG TABLETS TWICE A DAY)

REACTIONS (3)
  - Somnolence [Unknown]
  - Drug ineffective [Unknown]
  - Product use issue [Unknown]
